FAERS Safety Report 4463752-0 (Version None)
Quarter: 2004Q3

REPORT INFORMATION
  Report Type: 
  Country: None (occurrence: None)
  Receive Date: 20040929
  Receipt Date: 20040910
  Transmission Date: 20050211
  Serious: Yes (Hospitalization)
  Sender: FDA-Public Use
  Company Number: FR_040904736

PATIENT
  Age: 56 Year
  Sex: Female

DRUGS (5)
  1. ZYPREXA [Suspect]
     Dosage: 1 DAG FORM DAY
     Dates: end: 20040606
  2. MEPRONIZINE [Concomitant]
  3. TEGRETOL [Concomitant]
  4. OXAZEPAM [Concomitant]
  5. PAROXETINE HCL [Concomitant]

REACTIONS (6)
  - DIARRHOEA [None]
  - GALLBLADDER DISORDER [None]
  - HEPATIC STEATOSIS [None]
  - HEPATOCELLULAR DAMAGE [None]
  - HEPATOMEGALY [None]
  - VOMITING [None]
